FAERS Safety Report 5233750-8 (Version None)
Quarter: 2007Q1

REPORT INFORMATION
  Report Type: 
  Country: None (occurrence: None)
  Receive Date: 20070208
  Receipt Date: 20070129
  Transmission Date: 20070707
  Serious: Yes (Other)
  Sender: FDA-Public Use
  Company Number: US-ROCHE-467345

PATIENT
  Age: 21 Year
  Sex: Female
  Weight: 49.9 kg

DRUGS (4)
  1. ACCUTANE [Suspect]
     Indication: ACNE
     Route: 048
     Dates: start: 19991110, end: 20000515
  2. ACCUTANE [Suspect]
     Route: 048
     Dates: start: 20010112, end: 20020915
  3. ORTHO TRI-CYCLEN [Concomitant]
     Route: 048
     Dates: start: 19990915
  4. DAYPRO [Concomitant]
     Indication: HEADACHE
     Route: 048
     Dates: start: 20020805

REACTIONS (9)
  - COLITIS [None]
  - COLITIS ULCERATIVE [None]
  - DEPRESSION [None]
  - HEADACHE [None]
  - ILEITIS [None]
  - INFLAMMATORY BOWEL DISEASE [None]
  - INTESTINAL HAEMORRHAGE [None]
  - IRON DEFICIENCY ANAEMIA [None]
  - IRRITABLE BOWEL SYNDROME [None]
